FAERS Safety Report 4720203-6 (Version None)
Quarter: 2005Q3

REPORT INFORMATION
  Report Type: 
  Country: None (occurrence: None)
  Receive Date: 20050721
  Receipt Date: 20050615
  Transmission Date: 20060218
  Serious: Yes (Hospitalization)
  Sender: FDA-Public Use
  Company Number: 2005AP03366

PATIENT
  Age: 78 Year
  Sex: Female

DRUGS (2)
  1. IRESSA [Suspect]
     Indication: BREAST CANCER METASTATIC
     Route: 048
     Dates: start: 20040101
  2. IRESSA [Suspect]
     Route: 048
     Dates: start: 20040101

REACTIONS (4)
  - PARONYCHIA [None]
  - PERITONITIS SCLEROSING [None]
  - SKIN ULCER [None]
  - STOMATITIS [None]
